FAERS Safety Report 16473779 (Version 1)
Quarter: 2019Q2

REPORT INFORMATION
  Report Type: Spontaneous
  Country: US (occurrence: US)
  Receive Date: 20190515
  Receipt Date: 20190515
  Transmission Date: 20190711
  Serious: Yes (Other)
  Sender: FDA-Public Use
  Company Number: None

PATIENT
  Age: 45 Year
  Sex: Female
  Weight: 54.43 kg

DRUGS (1)
  1. DULOXETINE DR 60 MG [Suspect]
     Active Substance: DULOXETINE
     Indication: DEPRESSION
     Route: 048

REACTIONS (11)
  - Irritability [None]
  - Affective disorder [None]
  - Drug ineffective [None]
  - Product substitution issue [None]
  - Lethargy [None]
  - Somnolence [None]
  - Anxiety [None]
  - Depression [None]
  - Disturbance in attention [None]
  - Apathy [None]
  - Social avoidant behaviour [None]

NARRATIVE: CASE EVENT DATE: 20190216
